FAERS Safety Report 5065914-0 (Version None)
Quarter: 2006Q3

REPORT INFORMATION
  Report Type: 
  Country: None (occurrence: None)
  Receive Date: 20060731
  Receipt Date: 20060720
  Transmission Date: 20061208
  Serious: Yes (Other)
  Sender: FDA-Public Use
  Company Number: US-GILEAD-2006-0009897

PATIENT
  Sex: Male

DRUGS (2)
  1. VIREAD [Suspect]
  2. TRUVADA [Suspect]

REACTIONS (4)
  - FANCONI SYNDROME ACQUIRED [None]
  - HYPOPHOSPHATAEMIA [None]
  - METABOLIC ACIDOSIS [None]
  - PATHOLOGICAL FRACTURE [None]
